FAERS Safety Report 14251018 (Version 1)
Quarter: 2017Q4

REPORT INFORMATION
  Report Type: Spontaneous
  Country: US (occurrence: US)
  Receive Date: 20171205
  Receipt Date: 20171205
  Transmission Date: 20180321
  Serious: Yes (Disabling)
  Sender: FDA-Public Use
  Company Number: None

PATIENT
  Age: 56 Year
  Sex: Female
  Weight: 67.5 kg

DRUGS (1)
  1. CIPROFLOXACIN 500 MG TABLETS [Suspect]
     Active Substance: CIPROFLOXACIN
     Indication: COLITIS
     Dosage: ?          QUANTITY:1 TABLET(S);?
     Route: 048
     Dates: start: 20171122, end: 20171201

REACTIONS (1)
  - Myalgia [None]

NARRATIVE: CASE EVENT DATE: 20171124
